FAERS Safety Report 4783377-7 (Version None)
Quarter: 2005Q3

REPORT INFORMATION
  Report Type: 
  Country: None (occurrence: None)
  Receive Date: 20050929
  Receipt Date: 20050921
  Transmission Date: 20060218
  Serious: Yes (Other)
  Sender: FDA-Public Use
  Company Number: HU-ROCHE-418534

PATIENT
  Age: 23 Year
  Sex: Female

DRUGS (4)
  1. ROACCUTAN [Suspect]
     Dosage: DOSAGE REGIMEN REPORTED AS: 2 X 20MG.
     Route: 048
     Dates: start: 20050215, end: 20050415
  2. ROACCUTAN [Suspect]
     Route: 048
  3. ROACCUTAN [Suspect]
     Route: 048
  4. ROACCUTAN [Suspect]
     Route: 048
     Dates: end: 20050915

REACTIONS (2)
  - BREAST CANCER METASTATIC [None]
  - TACHYCARDIA [None]
